FAERS Safety Report 14343717 (Version 1)
Quarter: 2017Q4

REPORT INFORMATION
  Report Type: Spontaneous
  Country: US (occurrence: US)
  Receive Date: 20171229
  Receipt Date: 20171229
  Transmission Date: 20180321
  Serious: No
  Sender: FDA-Public Use
  Company Number: None

PATIENT
  Sex: Female
  Weight: 78.93 kg

DRUGS (2)
  1. OTREXUP [Suspect]
     Active Substance: METHOTREXATE
     Route: 058
     Dates: start: 201703
  2. STELARA [Suspect]
     Active Substance: USTEKINUMAB
     Indication: PSORIATIC ARTHROPATHY

REACTIONS (4)
  - Blood pressure increased [None]
  - Underdose [None]
  - Back pain [None]
  - Infusion related reaction [None]
